FAERS Safety Report 5906141-1 (Version None)
Quarter: 2008Q4

REPORT INFORMATION
  Report Type: 
  Country: None (occurrence: None)
  Receive Date: 20081002
  Receipt Date: 20080925
  Transmission Date: 20090506
  Serious: Yes (Other)
  Sender: FDA-Public Use
  Company Number: PHHY2008NL21842

PATIENT
  Sex: Male

DRUGS (8)
  1. COMTAN [Suspect]
     Indication: PARKINSON'S DISEASE
     Dosage: 200 MG, QID
     Dates: start: 20080709, end: 20080810
  2. SIFROL [Suspect]
     Dosage: 1.25 MG, TID
     Dates: start: 20071220
  3. SIFROL [Suspect]
     Dosage: 3 X 0.75 MG
  4. SIFROL [Suspect]
     Dosage: EVERY WEEK THE DOSE DECREASED WITH 3 X 0.25 MG
     Dates: end: 20080724
  5. SINEMET [Concomitant]
     Dosage: 4X250 MG PER DAY
  6. SINEMET [Concomitant]
     Dosage: UNK
     Dates: start: 20080526
  7. AVODART [Concomitant]
     Dosage: 0.5 MG PER DAY
  8. TAMSULOSIN HCL [Concomitant]
     Dosage: 0.4 MG PER DAY

REACTIONS (2)
  - DEPRESSION [None]
  - SUICIDAL IDEATION [None]
